FAERS Safety Report 6748854-8 (Version None)
Quarter: 2010Q2

REPORT INFORMATION
  Report Type: 
  Country: None (occurrence: None)
  Receive Date: 20100601
  Receipt Date: 20100526
  Transmission Date: 20101027
  Serious: Yes (Death, Hospitalization)
  Sender: FDA-Public Use
  Company Number: PHHY2010DE34261

PATIENT
  Sex: Female

DRUGS (2)
  1. EXELON [Suspect]
     Indication: DEMENTIA ALZHEIMER'S TYPE
     Dosage: 4.6 MG PER 24 HOURS
     Route: 062
     Dates: start: 20091029
  2. EXELON [Suspect]
     Dosage: 9.5 MG PER 24 HOURS
     Route: 062
     Dates: start: 20100120

REACTIONS (1)
  - RESPIRATORY TRACT INFECTION [None]
